FAERS Safety Report 5608895-0 (Version None)
Quarter: 2008Q1

REPORT INFORMATION
  Report Type: 
  Country: None (occurrence: None)
  Receive Date: 20080129
  Receipt Date: 20080129
  Transmission Date: 20080703
  Serious: Yes (Life-Threatening)
  Sender: FDA-Public Use
  Company Number: None

PATIENT
  Age: 54 Year
  Sex: Female
  Weight: 56.6996 kg

DRUGS (1)
  1. CHANTIX [Suspect]
     Indication: SMOKING CESSATION THERAPY
     Dosage: .05MG  DAILY FOR 3 DAYS  PO; UP TO 1MG TWICE DAILY PO
     Route: 048
     Dates: start: 20080105, end: 20080120

REACTIONS (3)
  - AGITATION [None]
  - SMOKER [None]
  - SUICIDAL IDEATION [None]
